FAERS Safety Report 24562671 (Version 1)
Quarter: 2024Q4

REPORT INFORMATION
  Report Type: Spontaneous
  Country: US (occurrence: US)
  Receive Date: 20241029
  Receipt Date: 20241029
  Transmission Date: 20250114
  Serious: No
  Sender: BRISTOL-MYERS SQUIBB COMPANY
  Company Number: US-BRISTOL-MYERS SQUIBB COMPANY-2024-169680

PATIENT
  Age: 68 Year

DRUGS (2)
  1. YERVOY [Suspect]
     Active Substance: IPILIMUMAB
     Indication: Metastasis
     Dosage: DOSE: 100MG Q 3 WEEKS X 4
  2. YERVOY [Suspect]
     Active Substance: IPILIMUMAB
     Dosage: DOSE: 480MG Q 3 WEEKS.

REACTIONS (1)
  - Off label use [Unknown]
